FAERS Safety Report 24945203 (Version 1)
Quarter: 2025Q1

REPORT INFORMATION
  Report Type: Spontaneous
  Country: US (occurrence: US)
  Receive Date: 20250208
  Receipt Date: 20250208
  Transmission Date: 20250409
  Serious: No
  Sender: ABBVIE
  Company Number: US-ABBVIE-6122413

PATIENT
  Sex: Female

DRUGS (1)
  1. RINVOQ [Suspect]
     Active Substance: UPADACITINIB
     Indication: Rheumatoid arthritis
     Route: 048

REACTIONS (6)
  - Sinus disorder [Unknown]
  - Malaise [Unknown]
  - Pharyngeal disorder [Unknown]
  - Nasopharyngitis [Unknown]
  - Arthropathy [Unknown]
  - Rheumatoid arthritis [Unknown]
